FAERS Safety Report 6700757-0 (Version None)
Quarter: 2010Q2

REPORT INFORMATION
  Report Type: 
  Country: None (occurrence: None)
  Receive Date: 20100428
  Receipt Date: 20100416
  Transmission Date: 20101027
  Serious: Yes (Death)
  Sender: FDA-Public Use
  Company Number: IE-MEDIMMUNE-MEDI-0010503

PATIENT
  Sex: Male

DRUGS (2)
  1. SYNAGIS [Suspect]
     Indication: RESPIRATORY SYNCYTIAL VIRUS INFECTION
     Route: 030
     Dates: start: 20091101, end: 20100126
  2. FRUMIL [Concomitant]

REACTIONS (1)
  - DEATH [None]
